FAERS Safety Report 5697605-7 (Version None)
Quarter: 2008Q2

REPORT INFORMATION
  Report Type: 
  Country: None (occurrence: None)
  Receive Date: 20080408
  Receipt Date: 20080328
  Transmission Date: 20081010
  Serious: Yes (Other)
  Sender: FDA-Public Use
  Company Number: JP-AVENTIS-200613515JP

PATIENT
  Age: 70 Year
  Sex: Male
  Weight: 44.8 kg

DRUGS (5)
  1. TAXOTERE [Suspect]
     Route: 041
     Dates: start: 20060627, end: 20060711
  2. RADIOTHERAPY [Concomitant]
     Dosage: DOSE: 60GY/TOTAL
     Dates: start: 20060627, end: 20060808
  3. DAONIL [Concomitant]
     Indication: DIABETES MELLITUS
     Route: 048
     Dates: start: 20060627, end: 20060712
  4. DAONIL [Concomitant]
     Route: 048
     Dates: start: 20060712, end: 20060808
  5. AMARYL [Concomitant]
     Indication: DIABETES MELLITUS
     Route: 048
     Dates: start: 20010101, end: 20060616

REACTIONS (1)
  - DIABETES MELLITUS [None]
